FAERS Safety Report 20635250 (Version 1)
Quarter: 2022Q1

REPORT INFORMATION
  Report Type: Spontaneous
  Country: IT (occurrence: IT)
  Receive Date: 20220325
  Receipt Date: 20220325
  Transmission Date: 20220423
  Serious: Yes (Other)
  Sender: FDA-Public Use
  Company Number: None

PATIENT
  Age: 68 Year
  Sex: Female
  Weight: 52 kg

DRUGS (1)
  1. CARBOPLATIN [Suspect]
     Active Substance: CARBOPLATIN
     Indication: Ovarian neoplasm
     Dosage: 155MG
     Route: 042
     Dates: start: 20220215, end: 20220301

REACTIONS (6)
  - Abdominal pain [Recovered/Resolved]
  - Erythema [Recovered/Resolved]
  - Pharyngeal paraesthesia [Recovered/Resolved]
  - Hypotension [Recovered/Resolved]
  - Abdominal pain upper [Recovered/Resolved]
  - Paraesthesia [Recovered/Resolved]

NARRATIVE: CASE EVENT DATE: 20220301
